FAERS Safety Report 5730078-4 (Version None)
Quarter: 2008Q2

REPORT INFORMATION
  Report Type: 
  Country: None (occurrence: None)
  Receive Date: 20080507
  Receipt Date: 20080428
  Transmission Date: 20081010
  Serious: Yes (Other)
  Sender: FDA-Public Use
  Company Number: US-WYE-H03878008

PATIENT
  Sex: Female
  Weight: 63.56 kg

DRUGS (1)
  1. PREMPRO [Suspect]
     Indication: HORMONE THERAPY
     Dosage: UNKNOWN
     Route: 048
     Dates: start: 19971201, end: 20010201

REACTIONS (1)
  - BREAST CANCER RECURRENT [None]
